FAERS Safety Report 10523207 (Version 1)
Quarter: 2014Q4

REPORT INFORMATION
  Report Type: Spontaneous
  Country: US (occurrence: US)
  Receive Date: 20141016
  Receipt Date: 20141016
  Transmission Date: 20150528
  Serious: Yes (Other)
  Sender: FDA-Public Use
  Company Number: US-PFIZER INC-2014283086

PATIENT
  Age: 49 Year
  Sex: Female
  Weight: 91 kg

DRUGS (8)
  1. PRILOSEC [Concomitant]
     Active Substance: OMEPRAZOLE MAGNESIUM
     Dosage: 20 MG, 1X/DAY
     Route: 048
  2. LYRICA [Suspect]
     Active Substance: PREGABALIN
     Indication: FIBROMYALGIA
     Dosage: UNK, 3X/DAY
  3. XANAX [Concomitant]
     Active Substance: ALPRAZOLAM
     Dosage: 1 MG, 3X/DAY
     Route: 048
  4. HALDOL [Concomitant]
     Active Substance: HALOPERIDOL
     Dosage: 5 MG, 1X/DAY
     Route: 048
  5. TRAZODONE [Concomitant]
     Active Substance: TRAZODONE HYDROCHLORIDE
     Dosage: 200 MG, DAILY AT NIGHT
     Route: 048
  6. PROZAC [Concomitant]
     Active Substance: FLUOXETINE HYDROCHLORIDE
     Dosage: 40 MG, 2X/DAY
     Route: 048
  7. ADDERALL [Concomitant]
     Active Substance: AMPHETAMINE ASPARTATE\AMPHETAMINE SULFATE\DEXTROAMPHETAMINE SACCHARATE\DEXTROAMPHETAMINE SULFATE
     Dosage: 20 MG, 2X/DAY
     Route: 048
  8. LYRICA [Suspect]
     Active Substance: PREGABALIN
     Indication: BACK PAIN

REACTIONS (3)
  - Intestinal ulcer [Recovering/Resolving]
  - Haemorrhage [Recovering/Resolving]
  - Gastric ulcer [Recovering/Resolving]

NARRATIVE: CASE EVENT DATE: 2013
